FAERS Safety Report 5248732-X (Version None)
Quarter: 2007Q1

REPORT INFORMATION
  Report Type: 
  Country: None (occurrence: None)
  Receive Date: 20070222
  Receipt Date: 20070208
  Transmission Date: 20070707
  Serious: Yes (Other)
  Sender: FDA-Public Use
  Company Number: 236346

PATIENT
  Sex: Female

DRUGS (3)
  1. HERCEPTIN [Suspect]
     Dosage: 1/WEEK, INTRAVENOUS
     Route: 042
  2. ALLERGY SHOTS (ALLERGENIC EXTRACTS) [Suspect]
     Indication: HYPERSENSITIVITY
     Dosage: 1/WEEK
  3. TAXOL [Concomitant]

REACTIONS (1)
  - ANAPHYLACTIC REACTION [None]
